FAERS Safety Report 9032255 (Version 1)
Quarter: 2013Q1

REPORT INFORMATION
  Report Type: Spontaneous
  Country: DK (occurrence: DK)
  Receive Date: 20130122
  Receipt Date: 20130122
  Transmission Date: 20140127
  Serious: Yes (Other)
  Sender: FDA-Public Use
  Company Number: DK-JNJFOC-20130111002

PATIENT
  Sex: 0

DRUGS (4)
  1. DURAGESIC [Suspect]
     Indication: CANCER PAIN
     Route: 062
  2. DURAGESIC [Suspect]
     Indication: CANCER PAIN
     Route: 062
  3. MORPHINE [Suspect]
     Indication: CANCER PAIN
     Route: 065
  4. UNSPECIFIED INGREDIENT [Suspect]
     Indication: CANCER PAIN
     Route: 048

REACTIONS (18)
  - Malignant neoplasm progression [Unknown]
  - Lymphoedema [Unknown]
  - Oral candidiasis [Unknown]
  - Oedema peripheral [Unknown]
  - Pneumonia [Unknown]
  - Sleep disorder [Unknown]
  - Back pain [Unknown]
  - Pain [Unknown]
  - Drug prescribing error [Unknown]
  - Constipation [Unknown]
  - Nausea [Unknown]
  - Azotaemia [Unknown]
  - Vomiting [Unknown]
  - Dizziness [Unknown]
  - Sedation [Unknown]
  - Neuralgia [Unknown]
  - Anxiety [Unknown]
  - Somnolence [Unknown]
